FAERS Safety Report 8882642 (Version 1)
Quarter: 2012Q4

REPORT INFORMATION
  Report Type: 
  Country: BE (occurrence: BE)
  Receive Date: 20121102
  Receipt Date: 20121102
  Transmission Date: 20130627
  Serious: Yes (Death, Hospitalization, Other)
  Sender: FDA-Public Use
  Company Number: PHHY2012BE098987

PATIENT
  Sex: Female

DRUGS (8)
  1. METHOTREXATE [Suspect]
     Indication: CHORIOCARCINOMA
     Dosage: 1000 mg/m2, UNK
  2. METHOTREXATE [Suspect]
     Route: 037
  3. METHOTREXATE [Suspect]
     Dosage: 300 mg/m2, UNK
  4. ETOPOSIDE [Suspect]
     Indication: CHORIOCARCINOMA
     Dosage: 100 mg/m2, QW
  5. ETOPOSIDE [Suspect]
     Dosage: 150 mg/m2, UNK
  6. CISPLATIN [Suspect]
     Indication: CHORIOCARCINOMA
     Dosage: 75 mg/m2, UNK
  7. DACTINOMYCIN [Suspect]
     Indication: CHORIOCARCINOMA
     Dosage: 0.5 mg, UNK
     Route: 042
  8. CARBOPLATIN [Concomitant]
     Indication: CHORIOCARCINOMA

REACTIONS (8)
  - Cerebral artery embolism [Fatal]
  - Ototoxicity [Unknown]
  - Coma [Recovered/Resolved]
  - Neutropenic sepsis [Unknown]
  - Endocarditis [Unknown]
  - Pancytopenia [Recovered/Resolved]
  - Bone marrow failure [Unknown]
  - Drug resistance [Unknown]
